FAERS Safety Report 6040152-3 (Version None)
Quarter: 2009Q1

REPORT INFORMATION
  Report Type: 
  Country: None (occurrence: None)
  Receive Date: 20090116
  Receipt Date: 20071228
  Transmission Date: 20090719
  Serious: No
  Sender: FDA-Public Use
  Company Number: US-BRISTOL-MYERS SQUIBB COMPANY-14026298

PATIENT
  Age: 46 Year
  Sex: Female
  Weight: 74 kg

DRUGS (7)
  1. ABILIFY [Suspect]
     Indication: BIPOLAR DISORDER
     Route: 048
     Dates: start: 20071218, end: 20071221
  2. EFFEXOR [Concomitant]
  3. LIPITOR [Concomitant]
  4. LEVOXYL [Concomitant]
  5. TOPROL-XL [Concomitant]
  6. HYZAAR [Concomitant]
  7. CLONAZEPAM [Concomitant]

REACTIONS (3)
  - INSOMNIA [None]
  - PSYCHOMOTOR HYPERACTIVITY [None]
  - WEIGHT DECREASED [None]
